FAERS Safety Report 7949489-1 (Version None)
Quarter: 2011Q4

REPORT INFORMATION
  Report Type: 
  Country: None (occurrence: None)
  Receive Date: 20111130
  Receipt Date: 20111117
  Transmission Date: 20120403
  Serious: Yes (Hospitalization)
  Sender: FDA-Public Use
  Company Number: US-ASTRAZENECA-2011SE43170

PATIENT
  Age: 48 Year
  Sex: Male

DRUGS (14)
  1. ACETAMINOPHEN [Concomitant]
     Dosage: AS NEEDED
  2. ATENOLOL [Suspect]
     Route: 048
  3. FLUOXETINE [Concomitant]
  4. FIORICET [Concomitant]
     Dosage: AS NEEDED
  5. NORVASC [Concomitant]
  6. TOPROL-XL [Suspect]
     Route: 048
  7. AMLODIPINE [Concomitant]
  8. MULTI-VITAMIN [Concomitant]
     Dosage: DAILY
  9. GABAPENTIN [Concomitant]
  10. ASPIRIN [Concomitant]
  11. LIPITOR [Concomitant]
  12. METFORMIN HCL [Concomitant]
  13. PLAVIX [Concomitant]
  14. TRAZODONE HCL [Concomitant]

REACTIONS (5)
  - TYPE 2 DIABETES MELLITUS [None]
  - CHEST PAIN [None]
  - OCCIPITAL NEURALGIA [None]
  - MYOCARDIAL INFARCTION [None]
  - HYPERTENSION [None]
